FAERS Safety Report 19034388 (Version 9)
Quarter: 2023Q4

REPORT INFORMATION
  Report Type: Report from Study
  Country: US (occurrence: US)
  Receive Date: 20210320
  Receipt Date: 20231114
  Transmission Date: 20240110
  Serious: Yes (Other)
  Sender: FDA-Public Use
  Company Number: US-TAKEDA-US202026942

PATIENT
  Sex: Female

DRUGS (4)
  1. HUMAN IMMUNOGLOBULIN G [Suspect]
     Active Substance: HUMAN IMMUNOGLOBULIN G
     Indication: Hypogammaglobulinaemia
     Dosage: UNK
     Route: 058
  2. HUMAN IMMUNOGLOBULIN G [Suspect]
     Active Substance: HUMAN IMMUNOGLOBULIN G
     Indication: Primary immunodeficiency syndrome
  3. HUMAN IMMUNOGLOBULIN G [Suspect]
     Active Substance: HUMAN IMMUNOGLOBULIN G
     Indication: Immunodeficiency common variable
  4. INFLUENZA VIRUS VACCINE [Suspect]
     Active Substance: INFLUENZA VIRUS VACCINE
     Indication: Product used for unknown indication
     Dosage: UNK
     Route: 065

REACTIONS (31)
  - Pelvic organ prolapse [Unknown]
  - Post procedural haemorrhage [Unknown]
  - Lung carcinoma cell type unspecified stage I [Unknown]
  - Blister [Unknown]
  - Oral infection [Unknown]
  - Antinuclear antibody increased [Unknown]
  - Limb mass [Unknown]
  - Swelling [Unknown]
  - Muscular weakness [Unknown]
  - Contusion [Not Recovered/Not Resolved]
  - Gait disturbance [Unknown]
  - Tympanic membrane disorder [Unknown]
  - Discharge [Unknown]
  - Illness [Not Recovered/Not Resolved]
  - Spinal synovial cyst [Unknown]
  - Gastrointestinal inflammation [Unknown]
  - Oral mucosal blistering [Unknown]
  - Thyroid disorder [Unknown]
  - Sinus disorder [Unknown]
  - Taste disorder [Unknown]
  - Infection [Unknown]
  - Facial pain [Unknown]
  - Blood immunoglobulin A decreased [Unknown]
  - Blood immunoglobulin M decreased [Unknown]
  - Haematoma [Not Recovered/Not Resolved]
  - Abdominal pain upper [Unknown]
  - Chest pain [Unknown]
  - Malaise [Unknown]
  - Nausea [Unknown]
  - Fatigue [Unknown]
  - Weight increased [Unknown]
